FAERS Safety Report 14755649 (Version 3)
Quarter: 2018Q2

REPORT INFORMATION
  Report Type: Spontaneous
  Country: FR (occurrence: FR)
  Receive Date: 20180413
  Receipt Date: 20180628
  Transmission Date: 20180711
  Serious: Yes (Other)
  Sender: FDA-Public Use
  Company Number: FR-MERCK KGAA-2045734

PATIENT
  Age: 76 Year
  Sex: Female

DRUGS (11)
  1. TAREG [Concomitant]
     Active Substance: VALSARTAN
  2. NOVOTHYROX [Suspect]
     Active Substance: LEVOTHYROXINE SODIUM
     Indication: PRODUCT USED FOR UNKNOWN INDICATION
     Dates: start: 20180314
  3. JANUVIA [Concomitant]
     Active Substance: SITAGLIPTIN PHOSPHATE
  4. AMAREL [Concomitant]
     Active Substance: GLIMEPIRIDE
  5. VITAMIN B12 [Concomitant]
     Active Substance: CYANOCOBALAMIN
  6. TAREG [Concomitant]
     Active Substance: VALSARTAN
  7. STAGID [Concomitant]
     Active Substance: METFORMIN PAMOATE
  8. SIMVASTATINE [Concomitant]
     Active Substance: SIMVASTATIN
  9. LEVOTHYROX 125 NF [Suspect]
     Active Substance: LEVOTHYROXINE SODIUM
     Dates: start: 20180611
  10. IRON [Concomitant]
     Active Substance: IRON
  11. VITAMIN D [Concomitant]
     Active Substance: CHOLECALCIFEROL

REACTIONS (5)
  - Hypoaesthesia [None]
  - Fatigue [Recovering/Resolving]
  - Feeling cold [None]
  - Myalgia [Not Recovered/Not Resolved]
  - Feeling abnormal [None]

NARRATIVE: CASE EVENT DATE: 2018
